FAERS Safety Report 7042650-2 (Version None)
Quarter: 2010Q4

REPORT INFORMATION
  Report Type: 
  Country: None (occurrence: None)
  Receive Date: 20101013
  Receipt Date: 20100712
  Transmission Date: 20110411
  Serious: No
  Sender: FDA-Public Use
  Company Number: US-ASTRAZENECA-2010SE32383

PATIENT
  Sex: Female
  Weight: 72.6 kg

DRUGS (12)
  1. SYMBICORT [Suspect]
     Dosage: 80/4.5 2 PUFFS BID
     Route: 055
  2. METOPROLOL [Concomitant]
  3. HYDROCHLOROTHIAZIDE [Concomitant]
  4. SIMVASTATIN [Concomitant]
  5. OMEPRAZOLE [Concomitant]
  6. GABAPENTIN [Concomitant]
  7. FLUOXETINE [Concomitant]
  8. SINGULAIR [Concomitant]
  9. NASONEX [Concomitant]
  10. VENTOLIN [Concomitant]
  11. LORAZEPAM [Concomitant]
  12. VITAMINS [Concomitant]

REACTIONS (4)
  - CANDIDIASIS [None]
  - COUGH [None]
  - INCORRECT DOSE ADMINISTERED [None]
  - WHEEZING [None]
